FAERS Safety Report 9123935 (Version 1)
Quarter: 2013Q1

REPORT INFORMATION
  Report Type: Spontaneous
  Country: US (occurrence: US)
  Receive Date: 20130116
  Receipt Date: 20130116
  Transmission Date: 20140127
  Serious: No
  Sender: FDA-Public Use
  Company Number: US-PFIZER INC-2013016584

PATIENT
  Age: 65 Year
  Sex: Female

DRUGS (2)
  1. MORPHINE SULFATE [Suspect]
  2. DANAZOL [Concomitant]

REACTIONS (1)
  - Drug hypersensitivity [Unknown]
